FAERS Safety Report 5355251-9 (Version None)
Quarter: 2007Q2

REPORT INFORMATION
  Report Type: 
  Country: None (occurrence: None)
  Receive Date: 20070611
  Receipt Date: 20070531
  Transmission Date: 20071010
  Serious: Yes (Other)
  Sender: FDA-Public Use
  Company Number: S07-USA-02360-01

PATIENT
  Age: 54 Year
  Sex: Male

DRUGS (4)
  1. CELEXA [Suspect]
     Indication: DEPRESSION
     Dosage: 20 MG QD PO
     Route: 048
     Dates: start: 20070401, end: 20070521
  2. NORVASC [Concomitant]
  3. ATIVAN [Concomitant]
  4. ASPIRIN [Concomitant]

REACTIONS (12)
  - BREAST SWELLING [None]
  - BREAST TENDERNESS [None]
  - DIARRHOEA [None]
  - DRY MOUTH [None]
  - EJACULATION DISORDER [None]
  - GYNAECOMASTIA [None]
  - HOMICIDAL IDEATION [None]
  - INSOMNIA [None]
  - MEMORY IMPAIRMENT [None]
  - SOCIAL AVOIDANT BEHAVIOUR [None]
  - SOMNOLENCE [None]
  - SUICIDAL IDEATION [None]
